FAERS Safety Report 9682868 (Version 2)
Quarter: 2014Q1

REPORT INFORMATION
  Report Type: Spontaneous
  Country: US (occurrence: US)
  Receive Date: 20131112
  Receipt Date: 20140116
  Transmission Date: 20141002
  Serious: No
  Sender: FDA-Public Use
  Company Number: US-009507513-1311USA002909

PATIENT
  Sex: Female

DRUGS (1)
  1. AZASITE [Suspect]
     Indication: CORNEAL ABRASION
     Dosage: 1 GTT, QOD (1 DROP PER EYE EVERY OTHER DAY)
     Route: 047
     Dates: start: 20130927

REACTIONS (2)
  - Inappropriate schedule of drug administration [Unknown]
  - No adverse event [Unknown]
